FAERS Safety Report 9779998 (Version 2)
Quarter: 2014Q1

REPORT INFORMATION
  Report Type: Report from Study
  Country: TR (occurrence: TR)
  Receive Date: 20131223
  Receipt Date: 20140117
  Transmission Date: 20141002
  Serious: Yes (Hospitalization)
  Sender: FDA-Public Use
  Company Number: TR-ABBVIE-13P-161-1182061-00

PATIENT
  Age: 37 Year
  Sex: Female
  Weight: 49 kg

DRUGS (5)
  1. HUMIRA [Suspect]
     Indication: RHEUMATOID ARTHRITIS
     Route: 058
     Dates: start: 20121212, end: 20130905
  2. HUMIRA [Suspect]
     Route: 058
     Dates: start: 20130905
  3. ARAVA [Concomitant]
     Indication: RHEUMATOID ARTHRITIS
     Route: 048
  4. CALCIUM [Concomitant]
     Indication: RHEUMATOID ARTHRITIS
     Route: 048
  5. VOLTAREN [Concomitant]
     Indication: RHEUMATOID ARTHRITIS
     Route: 048

REACTIONS (1)
  - Foot deformity [Recovered/Resolved]
